FAERS Safety Report 11536200 (Version 1)
Quarter: 2015Q3

REPORT INFORMATION
  Report Type: Spontaneous
  Country: US (occurrence: US)
  Receive Date: 20150903
  Receipt Date: 20150903
  Transmission Date: 20151125
  Serious: No
  Sender: FDA-Public Use
  Company Number: US-ELI_LILLY_AND_COMPANY-US201106007494

PATIENT
  Age: 72 Year
  Sex: Female

DRUGS (1)
  1. HUMALOG [Suspect]
     Active Substance: INSULIN LISPRO
     Indication: TYPE 1 DIABETES MELLITUS
     Dosage: 22 U, TID
     Dates: start: 1999

REACTIONS (13)
  - Blood glucose decreased [Recovered/Resolved]
  - Arthralgia [Recovering/Resolving]
  - Rheumatoid arthritis [Unknown]
  - Joint swelling [Recovering/Resolving]
  - Anxiety [Unknown]
  - Incorrect product storage [Recovered/Resolved]
  - Insomnia [Unknown]
  - Pyrexia [Recovered/Resolved]
  - Visual impairment [Unknown]
  - Blood glucose increased [Unknown]
  - Night sweats [Unknown]
  - Therapeutic response increased [Unknown]
  - Restless legs syndrome [Unknown]

NARRATIVE: CASE EVENT DATE: 1999
